FAERS Safety Report 14851980 (Version 2)
Quarter: 2018Q3

REPORT INFORMATION
  Report Type: Spontaneous
  Country: DE (occurrence: DE)
  Receive Date: 20180507
  Receipt Date: 20180730
  Transmission Date: 20181010
  Serious: Yes (Hospitalization)
  Sender: FDA-Public Use
  Company Number: PHHY2018DE074450

PATIENT
  Age: 66 Year
  Sex: Male

DRUGS (5)
  1. AMLODIPINE [Suspect]
     Active Substance: AMLODIPINE BESYLATE
     Indication: PRODUCT USED FOR UNKNOWN INDICATION
     Dosage: 5 MG, BID
     Route: 065
  2. ATARAX [Suspect]
     Active Substance: HYDROXYZINE HYDROCHLORIDE
     Indication: PRODUCT USED FOR UNKNOWN INDICATION
     Dosage: 25 MG, BID
     Route: 065
  3. ATARAX [Suspect]
     Active Substance: HYDROXYZINE HYDROCHLORIDE
     Dosage: 25 MG, QD
     Route: 065
  4. METOPROLOL SUCCINATE. [Suspect]
     Active Substance: METOPROLOL SUCCINATE
     Indication: PRODUCT USED FOR UNKNOWN INDICATION
     Dosage: 95 MG, BID (1?0?1)
     Route: 065
  5. PANTOPRAZOLE [Suspect]
     Active Substance: PANTOPRAZOLE
     Indication: PRODUCT USED FOR UNKNOWN INDICATION
     Dosage: 40 MG, QD
     Route: 065

REACTIONS (4)
  - Off label use [Unknown]
  - Dyspnoea [Unknown]
  - Urinary tract infection [Unknown]
  - Sinus tachycardia [Unknown]
